FAERS Safety Report 14675353 (Version 1)
Quarter: 2018Q1

REPORT INFORMATION
  Report Type: Spontaneous
  Country: US (occurrence: US)
  Receive Date: 20180323
  Receipt Date: 20180323
  Transmission Date: 20180509
  Serious: Yes (Other)
  Sender: FDA-Public Use
  Company Number: US-NEPHRON STERILE COMPOUNDING CENTER-2044421

PATIENT
  Age: 38 Year
  Sex: Male
  Weight: 70 kg

DRUGS (5)
  1. FENTANYL. [Concomitant]
     Active Substance: FENTANYL
     Dates: start: 20180315, end: 20180315
  2. LIDOCAINE. [Concomitant]
     Active Substance: LIDOCAINE
     Dates: start: 20180315, end: 20180315
  3. PROPOFOL. [Concomitant]
     Active Substance: PROPOFOL
     Dates: start: 20180315, end: 20180315
  4. ROCURONIUM BROMIDE 50MG/5ML (10MG/ML) [Suspect]
     Active Substance: ROCURONIUM BROMIDE
     Indication: SURGERY
     Route: 040
     Dates: start: 20180315, end: 20180315
  5. CALDOLOR [Concomitant]
     Active Substance: IBUPROFEN
     Dates: start: 20180315, end: 20180315

REACTIONS (1)
  - Drug ineffective [Recovered/Resolved]

NARRATIVE: CASE EVENT DATE: 20180315
